FAERS Safety Report 8198050-5 (Version None)
Quarter: 2012Q1

REPORT INFORMATION
  Report Type: 
  Country: None (occurrence: None)
  Receive Date: 20120309
  Receipt Date: 20120229
  Transmission Date: 20120608
  Serious: Yes (Life-Threatening, Hospitalization, Other)
  Sender: FDA-Public Use
  Company Number: NL-JNJFOC-20120301297

PATIENT
  Sex: Male
  Weight: 106 kg

DRUGS (7)
  1. XARELTO [Suspect]
     Route: 048
     Dates: start: 20120119, end: 20120205
  2. XARELTO [Suspect]
     Indication: KNEE ARTHROPLASTY
     Route: 048
  3. XARELTO [Suspect]
     Indication: PROPHYLAXIS
     Route: 048
  4. ASCAL [Suspect]
     Indication: PRODUCT USED FOR UNKNOWN INDICATION
     Dates: start: 20111103, end: 20120209
  5. PANTOPRAZOLE [Concomitant]
     Dates: start: 20111103
  6. XARELTO [Suspect]
     Route: 048
     Dates: start: 20120119, end: 20120205
  7. PROSCAR [Concomitant]
     Dates: start: 20110130

REACTIONS (7)
  - DELIRIUM [None]
  - UROSEPSIS [None]
  - URINARY BLADDER HAEMORRHAGE [None]
  - HAEMATURIA [None]
  - URINARY RETENTION [None]
  - THROMBOSIS [None]
  - RENAL IMPAIRMENT [None]
